FAERS Safety Report 8514903-X (Version None)
Quarter: 2012Q3

REPORT INFORMATION
  Report Type: 
  Country: None (occurrence: None)
  Receive Date: 20120717
  Receipt Date: 20120702
  Transmission Date: 20120928
  Serious: Yes (Death, Other)
  Sender: FDA-Public Use
  Company Number: JP-ROCHE-1086099

PATIENT
  Age: 77 Year
  Sex: Male

DRUGS (3)
  1. PREDNISOLONE [Concomitant]
     Indication: ACQUIRED HAEMOPHILIA
  2. CYCLOPHOSPHAMIDE [Concomitant]
     Indication: ACQUIRED HAEMOPHILIA
  3. RITUXIMAB [Suspect]
     Indication: ACQUIRED HAEMOPHILIA

REACTIONS (4)
  - ACUTE MYELOID LEUKAEMIA [None]
  - LARYNGEAL HAEMATOMA [None]
  - PNEUMONIA [None]
  - HAEMORRHAGE SUBCUTANEOUS [None]
